FAERS Safety Report 9781064 (Version 1)
Quarter: 2013Q4

REPORT INFORMATION
  Report Type: Spontaneous
  Country: IN (occurrence: IN)
  Receive Date: 20131224
  Receipt Date: 20131224
  Transmission Date: 20140711
  Serious: Yes (Other)
  Sender: FDA-Public Use
  Company Number: PHHY2013IN148150

PATIENT
  Age: 46 Year
  Sex: Male

DRUGS (3)
  1. AMLODIPINE [Suspect]
     Dosage: 10 MG, QD
  2. BIORAL [Suspect]
     Dosage: 50 MG, TID
  3. PREDNISOLONE [Concomitant]
     Dosage: 5 DF, BID

REACTIONS (4)
  - Drug abuse [Unknown]
  - Gingival hyperplasia [Recovered/Resolved]
  - Gingival swelling [Recovered/Resolved]
  - Gingival bleeding [Recovered/Resolved]
